FAERS Safety Report 4825888-1 (Version None)
Quarter: 2005Q4

REPORT INFORMATION
  Report Type: 
  Country: None (occurrence: None)
  Receive Date: 20051111
  Receipt Date: 20051101
  Transmission Date: 20060501
  Serious: Yes (Death)
  Sender: FDA-Public Use
  Company Number: US-JNJFOC-20051002178

PATIENT
  Sex: Female
  Weight: 63.05 kg

DRUGS (34)
  1. FLEXERIL [Suspect]
     Indication: OSTEOARTHRITIS
     Route: 048
  2. PAXIL [Concomitant]
     Route: 048
  3. GUAIFENESIN [Concomitant]
     Route: 048
  4. ALPRAZOLAM [Concomitant]
     Route: 048
  5. LIPITOR [Concomitant]
     Route: 048
  6. ATACAND [Concomitant]
     Route: 048
  7. THEOPHYLLINE-SR [Concomitant]
     Route: 048
  8. MULTI-VITAMIN [Concomitant]
     Route: 048
  9. MULTI-VITAMIN [Concomitant]
     Route: 048
  10. MULTI-VITAMIN [Concomitant]
     Route: 048
  11. MULTI-VITAMIN [Concomitant]
     Route: 048
  12. MULTI-VITAMIN [Concomitant]
     Route: 048
  13. MULTI-VITAMIN [Concomitant]
     Route: 048
  14. MULTI-VITAMIN [Concomitant]
     Route: 048
  15. MULTI-VITAMIN [Concomitant]
     Route: 048
  16. ATROVENT [Concomitant]
     Dosage: EVERY 6 HOURS AS NEEDED
  17. ALBUTEROL [Concomitant]
     Dosage: EVERY 6 HOURS AS NEEDED
  18. ADVAIR DISKUS 100/50 [Concomitant]
  19. ADVAIR DISKUS 100/50 [Concomitant]
  20. COMBIVENT [Concomitant]
  21. COMBIVENT [Concomitant]
     Dosage: 2 PUFFS EVERY 6 HOURS PRN
  22. FOSAMAX [Concomitant]
     Route: 048
  23. TYLENOL (CAPLET) [Concomitant]
  24. ASPIRIN [Concomitant]
     Route: 048
  25. CALCIUM AND VITAMIN D [Concomitant]
  26. CALCIUM AND VITAMIN D [Concomitant]
  27. CALCIUM AND VITAMIN D [Concomitant]
  28. CALCIUM AND VITAMIN D [Concomitant]
  29. CALCIUM AND VITAMIN D [Concomitant]
  30. HYDROCODONE [Concomitant]
     Route: 048
  31. ISOSORBIDE MONONITRATE [Concomitant]
     Route: 048
  32. METOCLOPRAMIDE [Concomitant]
     Route: 048
  33. MIACALCIN [Concomitant]
  34. TRAMADOL HCL [Concomitant]
     Route: 048

REACTIONS (2)
  - CARDIO-RESPIRATORY ARREST [None]
  - MALAISE [None]
